FAERS Safety Report 7442165-3 (Version None)
Quarter: 2011Q2

REPORT INFORMATION
  Report Type: 
  Country: None (occurrence: None)
  Receive Date: 20110428
  Receipt Date: 20110420
  Transmission Date: 20111010
  Serious: Yes (Death, Hospitalization, Other)
  Sender: FDA-Public Use
  Company Number: PHHY2010US49902

PATIENT
  Sex: Male
  Weight: 63 kg

DRUGS (1)
  1. EXJADE [Suspect]
     Indication: SICKLE CELL ANAEMIA
     Dosage: 1000 MG, QD
     Route: 048
     Dates: start: 20100527

REACTIONS (5)
  - COMA [None]
  - SICKLE CELL ANAEMIA [None]
  - RENAL IMPAIRMENT [None]
  - INTRACRANIAL ANEURYSM [None]
  - DISEASE PROGRESSION [None]
